FAERS Safety Report 8579048-1 (Version None)
Quarter: 2012Q3

REPORT INFORMATION
  Report Type: 
  Country: None (occurrence: None)
  Receive Date: 20120808
  Receipt Date: 20120802
  Transmission Date: 20120928
  Serious: Yes (Hospitalization)
  Sender: FDA-Public Use
  Company Number: FR-ROCHE-1088461

PATIENT
  Age: 71 Year
  Sex: Female

DRUGS (17)
  1. NEORECORMON [Concomitant]
     Indication: ANAEMIA
     Dates: start: 20120303
  2. NEORECORMON [Concomitant]
     Dates: start: 20120324
  3. ESCITALOPRAM [Concomitant]
     Dates: start: 20100101
  4. INCIVO [Suspect]
     Indication: HEPATITIS C
     Dosage: DOSE: 375 MG
     Route: 048
     Dates: start: 20120108, end: 20120327
  5. ESCITALOPRAM [Concomitant]
     Dates: start: 20060101
  6. REPAGLINIDE [Concomitant]
     Dates: start: 20110101
  7. ACARBOSE [Concomitant]
     Dates: start: 20110101
  8. NEORECORMON [Concomitant]
     Dates: start: 20120317
  9. ESCITALOPRAM [Concomitant]
     Dates: start: 20120313
  10. COPEGUS [Suspect]
     Indication: HEPATITIS C
     Dosage: DOSE: 200 (UNITS: NOT REPORTED)
     Route: 048
     Dates: start: 20120108, end: 20120325
  11. PEGASYS [Suspect]
     Indication: HEPATITIS C
     Route: 058
     Dates: start: 20120108, end: 20120325
  12. ONGLYZA [Concomitant]
     Dates: start: 20110101
  13. XANAX [Concomitant]
     Dates: start: 20110101
  14. LEVEMIR [Concomitant]
  15. ESCITALOPRAM [Concomitant]
     Dates: start: 20110101
  16. TRIMEPRAZINE TARTRATE [Concomitant]
     Dates: start: 20110101
  17. NEORECORMON [Concomitant]
     Dates: start: 20120310

REACTIONS (4)
  - PYREXIA [None]
  - PRURITUS [None]
  - RASH MACULO-PAPULAR [None]
  - FACE OEDEMA [None]
